FAERS Safety Report 4689282-9 (Version None)
Quarter: 2005Q2

REPORT INFORMATION
  Report Type: 
  Country: None (occurrence: None)
  Receive Date: 20050613
  Receipt Date: 20050603
  Transmission Date: 20051028
  Serious: Yes (Disabling, Other)
  Sender: FDA-Public Use
  Company Number: US-MERCK-0506USA00976

PATIENT
  Sex: Female
  Weight: 84 kg

DRUGS (15)
  1. AMBIEN [Concomitant]
     Indication: SLEEP DISORDER THERAPY
     Route: 065
  2. WELLBUTRIN [Concomitant]
     Indication: DEPRESSION
     Route: 065
  3. NAPROSYN [Concomitant]
     Indication: PAIN
     Route: 065
  4. ASPIRIN [Concomitant]
     Indication: PROPHYLAXIS
     Route: 065
     Dates: start: 19990101
  5. CLONAZEPAM [Concomitant]
     Route: 065
  6. VIOXX [Suspect]
     Indication: ARTHRALGIA
     Route: 048
     Dates: start: 19990601, end: 20020101
  7. VIOXX [Suspect]
     Route: 048
     Dates: start: 19990601, end: 20020101
  8. HYDROCODONE BITARTRATE [Concomitant]
     Indication: PAIN
     Route: 065
     Dates: start: 19990101, end: 20040101
  9. CARISOPRODOL [Concomitant]
     Route: 065
  10. CLONAZEPAM [Concomitant]
     Indication: ANXIETY
     Route: 065
     Dates: start: 19990101
  11. CLONAZEPAM [Concomitant]
     Indication: DEPRESSION
     Route: 065
     Dates: start: 19990101
  12. DIFLUCAN [Concomitant]
     Route: 065
  13. SINGULAIR [Concomitant]
     Indication: ASTHMA
     Route: 065
  14. LEXAPRO [Concomitant]
     Indication: DEPRESSION
     Route: 065
  15. EFFEXOR [Concomitant]
     Indication: DEPRESSION
     Route: 065
     Dates: start: 20000101, end: 20030101

REACTIONS (10)
  - BLOOD CHOLESTEROL INCREASED [None]
  - BLOOD PRESSURE INCREASED [None]
  - CARDIAC DISORDER [None]
  - CEREBROVASCULAR ACCIDENT [None]
  - EMOTIONAL DISTRESS [None]
  - GASTROOESOPHAGEAL REFLUX DISEASE [None]
  - OEDEMA PERIPHERAL [None]
  - OVERDOSE [None]
  - SURGERY [None]
  - TRANSIENT ISCHAEMIC ATTACK [None]
